FAERS Safety Report 12233049 (Version 1)
Quarter: 2016Q2

REPORT INFORMATION
  Report Type: Other
  Country: GB (occurrence: GB)
  Receive Date: 20160403
  Receipt Date: 20160403
  Transmission Date: 20160815
  Serious: Yes (Other)
  Sender: FDA-Public Use
  Company Number: GB-MYLANLABS-2016M1012697

PATIENT

DRUGS (6)
  1. GINKGO BILOBA EXTRACT [Concomitant]
     Active Substance: GINKGO
     Dosage: 6 G, QD (STANDARDISED EXTRACT)
  2. COD LIVER OIL [Concomitant]
     Active Substance: COD LIVER OIL
     Dosage: 1 G, QD (IN THE MORNING)
  3. NAPROXEN. [Concomitant]
     Active Substance: NAPROXEN
     Dosage: 250 MG, QD (AFTER FOOD IN THE MORNING)
  4. TAMSULOSINE [Concomitant]
     Active Substance: TAMSULOSIN HYDROCHLORIDE
     Dosage: 400 ?G, QD (IN THE MORNING)
  5. DOXYCYCLINE. [Suspect]
     Active Substance: DOXYCYCLINE
     Indication: MALARIA PROPHYLAXIS
     Dosage: 50 MG, QD
     Route: 048
     Dates: start: 20160216, end: 20160224
  6. DORZOLAMIDE [Concomitant]
     Active Substance: DORZOLAMIDE
     Dosage: 1 GTT, TID (LEFT EYE ONLY)
     Route: 047

REACTIONS (2)
  - Daydreaming [Recovered/Resolved]
  - Nightmare [Recovered/Resolved]

NARRATIVE: CASE EVENT DATE: 20160217
